FAERS Safety Report 5542546-9 (Version None)
Quarter: 2007Q4

REPORT INFORMATION
  Report Type: 
  Country: None (occurrence: None)
  Receive Date: 20071123
  Receipt Date: 20070706
  Transmission Date: 20080405
  Serious: Yes (Other)
  Sender: FDA-Public Use
  Company Number: US-JNJFOC-20070701877

PATIENT
  Age: 48 Year
  Sex: Female
  Weight: 40.8237 kg

DRUGS (1)
  1. LEVAQUIN [Suspect]
     Indication: INFECTION
     Dosage: 500 MG, ORAL
     Route: 048
     Dates: start: 20070517, end: 20070519

REACTIONS (1)
  - SWOLLEN TONGUE [None]
